FAERS Safety Report 6194502-8 (Version None)
Quarter: 2009Q2

REPORT INFORMATION
  Report Type: 
  Country: None (occurrence: None)
  Receive Date: 20090514
  Receipt Date: 20090507
  Transmission Date: 20091009
  Serious: Yes (Death)
  Sender: FDA-Public Use
  Company Number: 220001M09VNM

PATIENT
  Age: 15 Year

DRUGS (2)
  1. SAIZEN [Suspect]
  2. FUROSEMIDE         (FUROSEMIDE  /00032601/) [Suspect]

REACTIONS (1)
  - DEATH [None]
